FAERS Safety Report 5465538-7 (Version None)
Quarter: 2007Q3

REPORT INFORMATION
  Report Type: 
  Country: None (occurrence: None)
  Receive Date: 20070919
  Receipt Date: 20070906
  Transmission Date: 20080115
  Serious: Yes (Hospitalization)
  Sender: FDA-Public Use
  Company Number: 100#08#2007-03374

PATIENT
  Age: 51 Year
  Sex: Female

DRUGS (1)
  1. PROPRANOLOL [Suspect]
     Indication: PANIC ATTACK

REACTIONS (16)
  - CATECHOLAMINES URINE INCREASED [None]
  - DYSPNOEA [None]
  - HYPERHIDROSIS [None]
  - HYPERTENSION [None]
  - HYPOXIA [None]
  - LEFT VENTRICULAR HYPERTROPHY [None]
  - METANEPHRINE URINE INCREASED [None]
  - MYOCARDIAL INFARCTION [None]
  - PALPITATIONS [None]
  - PHAEOCHROMOCYTOMA [None]
  - PULMONARY OEDEMA [None]
  - PYREXIA [None]
  - RENAL FAILURE ACUTE [None]
  - TACHYCARDIA [None]
  - VOMITING [None]
  - WHITE BLOOD CELL COUNT INCREASED [None]
